FAERS Safety Report 9120161 (Version 1)
Quarter: 2013Q1

REPORT INFORMATION
  Report Type: Other
  Country: JP (occurrence: JP)
  Receive Date: 20130226
  Receipt Date: 20130226
  Transmission Date: 20140127
  Serious: Yes (Hospitalization)
  Sender: FDA-Public Use
  Company Number: JP-BRISTOL-MYERS SQUIBB COMPANY-17408741

PATIENT
  Age: 59 Year
  Sex: 0

DRUGS (2)
  1. PACLITAXEL [Suspect]
     Indication: BREAST CANCER
     Dates: start: 200306
  2. TRASTUZUMAB [Concomitant]
     Indication: BREAST CANCER
     Dosage: JUL06
     Dates: start: 200306

REACTIONS (1)
  - Schizophrenia [Recovering/Resolving]
